FAERS Safety Report 21800033 (Version 2)
Quarter: 2023Q1

REPORT INFORMATION
  Report Type: Spontaneous
  Country: US (occurrence: US)
  Receive Date: 20221230
  Receipt Date: 20230112
  Transmission Date: 20230418
  Serious: No
  Sender: FDA-Public Use
  Company Number: US-BRISTOL-MYERS SQUIBB COMPANY-2022-160343

PATIENT
  Age: 77 Year
  Sex: Male

DRUGS (2)
  1. POMALYST [Suspect]
     Active Substance: POMALIDOMIDE
     Indication: Plasma cell myeloma
     Dosage: EVERY DAY ON DAYS 1-21 FOLLOWED BY 7 DAYS OFF EVERY ?28 DAYS.
     Route: 048
     Dates: start: 20210203
  2. POMALYST [Suspect]
     Active Substance: POMALIDOMIDE
     Dosage: EVERY DAY ON DAYS 1-21 FOLLOWED BY 7 DAYS OFF EVERY 28 DAYS.
     Route: 048
     Dates: start: 20210618

REACTIONS (2)
  - Head discomfort [Not Recovered/Not Resolved]
  - Respiratory tract congestion [Not Recovered/Not Resolved]
